FAERS Safety Report 5430350-1 (Version None)
Quarter: 2007Q3

REPORT INFORMATION
  Report Type: 
  Country: None (occurrence: None)
  Receive Date: 20070828
  Receipt Date: 20070810
  Transmission Date: 20080115
  Serious: Yes (Hospitalization)
  Sender: FDA-Public Use
  Company Number: 2007PV033290

PATIENT
  Sex: Female

DRUGS (9)
  1. SYMLIN [Suspect]
     Indication: DRUG USE FOR UNKNOWN INDICATION
     Dosage: SC
     Route: 058
     Dates: start: 20070713
  2. LANTUS [Concomitant]
  3. NOVOLOG [Concomitant]
  4. PRILOSEC [Concomitant]
  5. FOLIC ACID [Concomitant]
  6. METHOTREXATE [Concomitant]
  7. ZYRTEC [Concomitant]
  8. CALTRATE [Concomitant]
  9. VITAMINS [Concomitant]

REACTIONS (1)
  - PANCREATITIS [None]
